FAERS Safety Report 14938904 (Version 1)
Quarter: 2018Q2

REPORT INFORMATION
  Report Type: Spontaneous
  Country: US (occurrence: US)
  Receive Date: 20180525
  Receipt Date: 20180525
  Transmission Date: 20180711
  Serious: Yes (Death)
  Sender: FDA-Public Use
  Company Number: US-ROCHE-2128465

PATIENT
  Age: 77 Year
  Sex: Female

DRUGS (2)
  1. TNKASE [Suspect]
     Active Substance: TENECTEPLASE
     Indication: MYOCARDIAL INFARCTION
     Dosage: ONGOING: NO
     Route: 065
     Dates: start: 20170511
  2. ASPIRIN. [Suspect]
     Active Substance: ASPIRIN
     Indication: MYOCARDIAL INFARCTION
     Dosage: GIVEN THREE ASPRINS
     Route: 065
     Dates: start: 20170511, end: 20170511

REACTIONS (2)
  - Myocardial infarction [Fatal]
  - Feeling abnormal [Fatal]

NARRATIVE: CASE EVENT DATE: 20170511
